FAERS Safety Report 16499694 (Version 1)
Quarter: 2019Q3

REPORT INFORMATION
  Report Type: Spontaneous
  Country: NG (occurrence: NG)
  Receive Date: 20190701
  Receipt Date: 20190701
  Transmission Date: 20191004
  Serious: Yes (Other)
  Sender: FDA-Public Use
  Company Number: NG-ACCORD-135374

PATIENT
  Age: 3 Year
  Sex: Male

DRUGS (2)
  1. CISPLATIN. [Suspect]
     Active Substance: CISPLATIN
     Indication: GLIOMA
  2. ETOPOSIDE. [Suspect]
     Active Substance: ETOPOSIDE
     Indication: GLIOMA

REACTIONS (3)
  - Bone marrow failure [Unknown]
  - Dermatitis [Unknown]
  - Lower respiratory tract infection [Unknown]
